FAERS Safety Report 17206668 (Version 1)
Quarter: 2019Q4

REPORT INFORMATION
  Report Type: Spontaneous
  Country: US (occurrence: US)
  Receive Date: 20191227
  Receipt Date: 20191227
  Transmission Date: 20200122
  Serious: Yes (Death)
  Sender: FDA-Public Use
  Company Number: US-ZYDUS-045000

PATIENT

DRUGS (3)
  1. IBRUTINIB [Interacting]
     Active Substance: IBRUTINIB
     Indication: CHRONIC LYMPHOCYTIC LEUKAEMIA
  2. IBRUTINIB [Suspect]
     Active Substance: IBRUTINIB
     Indication: CHRONIC LYMPHOCYTIC LEUKAEMIA
     Dosage: DOSE REDUCED TO ONCE EVERY 3 DAYS
  3. WARFARIN [Suspect]
     Active Substance: WARFARIN
     Indication: PROPHYLAXIS

REACTIONS (2)
  - Drug interaction [Fatal]
  - Haemothorax [Fatal]
